FAERS Safety Report 8861464 (Version 1)
Quarter: 2012Q4

REPORT INFORMATION
  Report Type: Spontaneous
  Country: US (occurrence: None)
  Receive Date: 20121025
  Receipt Date: 20121025
  Transmission Date: 20130627
  Serious: Yes (Life-Threatening, Other)
  Sender: FDA-Public Use
  Company Number: None

PATIENT
  Age: 57 Year
  Sex: Male

DRUGS (1)
  1. VANCOMYCIN [Suspect]
     Route: 042
     Dates: start: 20120506, end: 20120527

REACTIONS (1)
  - Angioedema [None]
